FAERS Safety Report 6744866-9 (Version None)
Quarter: 2010Q2

REPORT INFORMATION
  Report Type: 
  Country: None (occurrence: None)
  Receive Date: 20100527
  Receipt Date: 20100412
  Transmission Date: 20101027
  Serious: No
  Sender: FDA-Public Use
  Company Number: US-BRISTOL-MYERS SQUIBB COMPANY-15060411

PATIENT
  Sex: Male

DRUGS (2)
  1. ONGLYZA [Suspect]
     Dates: start: 20091201
  2. JANUMET [Suspect]
     Dates: start: 20091201

REACTIONS (1)
  - NAUSEA [None]
